FAERS Safety Report 4592598-8 (Version None)
Quarter: 2005Q1

REPORT INFORMATION
  Report Type: 
  Country: None (occurrence: None)
  Receive Date: 20050228
  Receipt Date: 20050216
  Transmission Date: 20050727
  Serious: Yes (Other)
  Sender: FDA-Public Use
  Company Number: US-JNJFOC-20041101997

PATIENT
  Age: 53 Year
  Sex: Female
  Weight: 104.33 kg

DRUGS (10)
  1. TOPAMAX [Suspect]
     Route: 049
  2. TOPAMAX [Suspect]
     Route: 049
  3. TOPAMAX [Suspect]
     Indication: MIGRAINE
     Route: 049
  4. NEXIUM [Concomitant]
  5. ALLEGRA [Concomitant]
  6. DIAVAN [Concomitant]
  7. CELEXA [Concomitant]
  8. ADVAIR DISKUS 100/50 [Concomitant]
  9. ADVAIR DISKUS 100/50 [Concomitant]
  10. CLONIDINE [Concomitant]

REACTIONS (2)
  - DEAFNESS [None]
  - THERAPEUTIC RESPONSE DECREASED [None]
